FAERS Safety Report 23240922 (Version 2)
Quarter: 2023Q4

REPORT INFORMATION
  Report Type: Spontaneous
  Country: JP (occurrence: None)
  Receive Date: 20231129
  Receipt Date: 20231205
  Transmission Date: 20240109
  Serious: Yes (Hospitalization, Other)
  Sender: FDA-Public Use
  Company Number: 2023A267945

PATIENT
  Age: 71 Year
  Sex: Male

DRUGS (8)
  1. IMFINZI [Suspect]
     Active Substance: DURVALUMAB
     Indication: Bile duct cancer
     Dosage: DOSE UNKNOWN, DAY 1
     Route: 041
     Dates: start: 20230613, end: 20230725
  2. IMFINZI [Suspect]
     Active Substance: DURVALUMAB
     Indication: Bile duct cancer
     Dosage: DOSE UNKNOWN, DAY 1
     Route: 041
     Dates: start: 20230912
  3. GEMCITABINE HYDROCHLORIDE [Concomitant]
     Active Substance: GEMCITABINE HYDROCHLORIDE
     Indication: Bile duct cancer
     Dosage: DOSE UNKNOWN, DAYS 1 AND 8
     Dates: start: 20230613, end: 20230725
  4. GEMCITABINE HYDROCHLORIDE [Concomitant]
     Active Substance: GEMCITABINE HYDROCHLORIDE
     Indication: Bile duct cancer
     Dosage: DOSE UNKNOWN, DAYS 1 AND 8
     Dates: start: 20230912
  5. CISPLATIN [Concomitant]
     Active Substance: CISPLATIN
     Indication: Bile duct cancer
     Dosage: DOSE UNKNOWN, DAYS 1 AND 8
     Dates: start: 20230613, end: 20230725
  6. CISPLATIN [Concomitant]
     Active Substance: CISPLATIN
     Indication: Bile duct cancer
     Dosage: DOSE UNKNOWN, DAYS 1 AND 8
     Dates: start: 20230912
  7. AMLODIPINE BESYLATE [Concomitant]
     Active Substance: AMLODIPINE BESYLATE
     Dosage: DOSE UNKNOWN
  8. LANSOPRAZOLE [Concomitant]
     Active Substance: LANSOPRAZOLE
     Dosage: DOSE UNKNOWN

REACTIONS (7)
  - Inflammation [Recovering/Resolving]
  - Hyponatraemia [Recovering/Resolving]
  - Pyrexia [Recovering/Resolving]
  - Cholangitis [Unknown]
  - Depressed level of consciousness [Recovering/Resolving]
  - Performance status decreased [Recovering/Resolving]
  - Feeding disorder [Recovering/Resolving]

NARRATIVE: CASE EVENT DATE: 20230811
